FAERS Safety Report 9781786 (Version 1)
Quarter: 2013Q4

REPORT INFORMATION
  Report Type: Report from Study
  Country: CA (occurrence: CA)
  Receive Date: 20131225
  Receipt Date: 20131225
  Transmission Date: 20140711
  Serious: Yes (Death)
  Sender: FDA-Public Use
  Company Number: CA-ROCHE-1325402

PATIENT
  Sex: Male
  Weight: 45.2 kg

DRUGS (14)
  1. RITUXAN [Suspect]
     Indication: PEMPHIGOID
     Route: 042
     Dates: start: 20131206, end: 20131206
  2. INSULIN HUMULIN [Concomitant]
  3. RAMIPRIL [Concomitant]
     Route: 065
     Dates: end: 2013
  4. FERROUS FUMARATE [Concomitant]
  5. ACETYLSALICYLIC ACID [Concomitant]
     Route: 065
  6. PREDNISONE [Concomitant]
  7. ROCALTROL [Concomitant]
  8. PANTOLOC [Concomitant]
  9. ELTROXIN [Concomitant]
  10. SIMVASTATIN [Concomitant]
  11. VITAMIN C [Concomitant]
  12. TYLENOL [Concomitant]
     Route: 065
  13. ADVIL [Concomitant]
     Route: 065
  14. IVIG [Concomitant]
     Dosage: LAST IV JUNE 13, 14, 2013-NOW HAS PICC LINE FOR IV
     Route: 065

REACTIONS (2)
  - Haemorrhage [Fatal]
  - Off label use [Unknown]
